FAERS Safety Report 15970440 (Version 1)
Quarter: 2019Q1

REPORT INFORMATION
  Report Type: Report from Study
  Country: US (occurrence: US)
  Receive Date: 20190215
  Receipt Date: 20190215
  Transmission Date: 20190418
  Serious: Yes (Hospitalization, Other)
  Sender: FDA-Public Use
  Company Number: US-AMAG PHARMACEUTICALS, INC.-AMAG201802652

PATIENT
  Age: 36 Year
  Sex: Female

DRUGS (2)
  1. BETAMETHASONE. [Concomitant]
     Active Substance: BETAMETHASONE
     Indication: MATERNAL THERAPY TO ENHANCE FOETAL LUNG MATURITY
     Dosage: UNK, X2 DOSES
     Route: 065
     Dates: start: 201805, end: 201805
  2. MAKENA [Suspect]
     Active Substance: HYDROXYPROGESTERONE CAPROATE
     Indication: PREMATURE DELIVERY
     Dosage: 250 MG/ML, WEEKLY
     Route: 030

REACTIONS (3)
  - Gestational hypertension [Unknown]
  - Premature delivery [Recovered/Resolved]
  - Oligohydramnios [Recovered/Resolved]

NARRATIVE: CASE EVENT DATE: 2018
